FAERS Safety Report 9486724 (Version 1)
Quarter: 2013Q3

REPORT INFORMATION
  Report Type: Spontaneous
  Country: US (occurrence: None)
  Receive Date: 20130827
  Receipt Date: 20130827
  Transmission Date: 20140515
  Serious: No
  Sender: FDA-Public Use
  Company Number: None

PATIENT
  Sex: Female

DRUGS (3)
  1. MEDROXYPROGESTERONE ACETATE [Suspect]
     Indication: CONTRACEPTION
     Dosage: 150 1 SHOT Q 3 MONTHS INJECTION
     Dates: start: 200708, end: 200305
  2. ORTHO TRI-CYCLEN LO [Concomitant]
  3. IBUPROFEN [Concomitant]

REACTIONS (9)
  - Lactose intolerance [None]
  - Vitamin D deficiency [None]
  - Migraine [None]
  - Bone disorder [None]
  - Tooth disorder [None]
  - Back pain [None]
  - Scab [None]
  - Skin exfoliation [None]
  - Impaired healing [None]
